FAERS Safety Report 24186498 (Version 1)
Quarter: 2024Q3

REPORT INFORMATION
  Report Type: Other
  Country: TR (occurrence: TR)
  Receive Date: 20240808
  Receipt Date: 20240808
  Transmission Date: 20241016
  Serious: Yes (Hospitalization)
  Sender: BIONPHARMA
  Company Number: TR-Bion-013630

PATIENT
  Age: 23 Year
  Sex: Male

DRUGS (5)
  1. VALPROIC ACID [Suspect]
     Active Substance: VALPROIC ACID
     Indication: Delusion of replacement
     Dosage: PER DAY
  2. PALIPERIDONE [Concomitant]
     Active Substance: PALIPERIDONE
     Indication: Delusion of replacement
     Dosage: PER 28 DAYS
  3. BIPERIDEN [Concomitant]
     Active Substance: BIPERIDEN
     Indication: Delusion of replacement
     Dosage: PER DAY
  4. OLANZAPINE [Concomitant]
     Active Substance: OLANZAPINE
     Indication: Delusion of replacement
     Dosage: PER DAY
  5. PALIPERIDONE [Concomitant]
     Active Substance: PALIPERIDONE
     Indication: Delusion of replacement
     Dosage: PER DAY

REACTIONS (2)
  - Treatment noncompliance [Unknown]
  - Drug ineffective for unapproved indication [Not Recovered/Not Resolved]
